FAERS Safety Report 23149180 (Version 1)
Quarter: 2023Q4

REPORT INFORMATION
  Report Type: Spontaneous
  Country: US (occurrence: US)
  Receive Date: 20231106
  Receipt Date: 20231106
  Transmission Date: 20240110
  Serious: No
  Sender: FDA-Public Use
  Company Number: US-PARATEK PHARMACEUTICALS, INC.-2022PTK00351

PATIENT

DRUGS (2)
  1. NUZYRA [Suspect]
     Active Substance: OMADACYCLINE
  2. XARELTO [Suspect]
     Active Substance: RIVAROXABAN
     Dosage: ^NORMAL DOSING^

REACTIONS (1)
  - Haematuria [Recovered/Resolved]
